FAERS Safety Report 5759476-X (Version None)
Quarter: 2008Q2

REPORT INFORMATION
  Report Type: 
  Country: None (occurrence: None)
  Receive Date: 20080605
  Receipt Date: 20080530
  Transmission Date: 20081010
  Serious: No
  Sender: FDA-Public Use
  Company Number: US-BAYER-200821075NA

PATIENT
  Age: 23 Year
  Sex: Female
  Weight: 78 kg

DRUGS (1)
  1. MIRENA [Suspect]
     Indication: CONTRACEPTION
     Route: 015
     Dates: start: 20040101

REACTIONS (4)
  - AMENORRHOEA [None]
  - IUCD COMPLICATION [None]
  - MALAISE [None]
  - PREGNANCY WITH CONTRACEPTIVE DEVICE [None]
